FAERS Safety Report 18284171 (Version 1)
Quarter: 2020Q3

REPORT INFORMATION
  Report Type: Report from Study
  Country: BE (occurrence: BE)
  Receive Date: 20200918
  Receipt Date: 20200918
  Transmission Date: 20201103
  Serious: Yes (Hospitalization)
  Sender: FDA-Public Use
  Company Number: BE-GLAXOSMITHKLINE-BE2020GSK186597

PATIENT
  Age: 74 Year
  Weight: 36.7 kg

DRUGS (8)
  1. BISOPROLOL [Concomitant]
     Active Substance: BISOPROLOL
     Indication: HYPERTENSION
     Dosage: 1.25 MG
     Route: 048
     Dates: start: 20170422
  2. LAXOBERON [Concomitant]
     Active Substance: SODIUM PICOSULFATE
     Indication: CONSTIPATION
     Dosage: 10 DROPS
     Route: 048
     Dates: start: 20200219
  3. NIRAPARIB [Suspect]
     Active Substance: NIRAPARIB
     Indication: OVARIAN CANCER
     Dosage: 100 MG, QD
     Route: 048
     Dates: start: 20200611, end: 20200914
  4. PANTOMED (DEXPANTHENOL) [Concomitant]
     Active Substance: DEXPANTHENOL
     Indication: ABDOMINAL PAIN UPPER
     Dosage: 40 MG
     Route: 048
     Dates: start: 20160619
  5. CARBOPLATIN (NON?GSK COMPARATOR) [Suspect]
     Active Substance: CARBOPLATIN
     Indication: OVARIAN CANCER
     Dosage: 5 AUC, 3 WEEKLY
     Route: 042
     Dates: start: 20191205, end: 20200415
  6. CAMCOLIT [Concomitant]
     Active Substance: LITHIUM CARBONATE
     Indication: BIPOLAR DISORDER RELAPSE PROPHYLAXIS
     Dosage: 400 MG
     Route: 048
     Dates: start: 1983
  7. GANETESPIB [Suspect]
     Active Substance: GANETESPIB
     Dosage: 100 MG/M2, WEEKLY
     Route: 042
     Dates: start: 20200611, end: 20200813
  8. GANETESPIB [Suspect]
     Active Substance: GANETESPIB
     Indication: OVARIAN CANCER
     Dosage: 150 MG/M2, 3 TIMES WEEKLY
     Route: 042
     Dates: start: 20191205, end: 20200415

REACTIONS (1)
  - General physical health deterioration [Not Recovered/Not Resolved]

NARRATIVE: CASE EVENT DATE: 20200915
